FAERS Safety Report 7832364-0 (Version None)
Quarter: 2011Q4

REPORT INFORMATION
  Report Type: 
  Country: None (occurrence: None)
  Receive Date: 20111022
  Receipt Date: 20111005
  Transmission Date: 20120403
  Serious: Yes (Life-Threatening, Other)
  Sender: FDA-Public Use
  Company Number: US-BAYER-2011-094215

PATIENT
  Age: 53 Year
  Sex: Male
  Weight: 159 kg

DRUGS (14)
  1. FELODIPINE [Concomitant]
  2. LEVOTHYROXINE SODIUM [Concomitant]
  3. SERTRALINE HYDROCHLORIDE [Concomitant]
  4. ALLOPURINOL [Concomitant]
  5. FONDAPARINUX SODIUM [Suspect]
     Indication: PULMONARY EMBOLISM
     Dosage: 10 MG, QD
     Route: 058
  6. IPRATROPIUM BROMIDE [Concomitant]
  7. PREGABALIN [Concomitant]
  8. LASIX [Concomitant]
  9. NITROGLYCERIN [Concomitant]
     Indication: CHEST PAIN
     Dosage: UNK UNK, PRN
  10. ACETYLSALICYLIC ACID SRT [Suspect]
     Route: 048
  11. WARFARIN SODIUM [Suspect]
     Indication: PULMONARY EMBOLISM
  12. ALBUTEROL [Concomitant]
  13. METOPROLOL TARTRATE [Concomitant]
  14. MORPHINE [Concomitant]

REACTIONS (2)
  - RETROPERITONEAL HAEMORRHAGE [None]
  - RENAL FAILURE [None]
